FAERS Safety Report 9912873 (Version 1)
Quarter: 2014Q1

REPORT INFORMATION
  Report Type: Spontaneous
  Country: US (occurrence: None)
  Receive Date: 20140218
  Receipt Date: 20140218
  Transmission Date: 20141002
  Serious: No
  Sender: FDA-Public Use
  Company Number: None

PATIENT
  Age: 68 Year
  Sex: Male

DRUGS (1)
  1. ENBREL PFS [Suspect]
     Indication: ANKYLOSING SPONDYLITIS
     Dates: start: 20130828, end: 20140214

REACTIONS (2)
  - Joint swelling [None]
  - Condition aggravated [None]
